FAERS Safety Report 4478930-4 (Version None)
Quarter: 2004Q4

REPORT INFORMATION
  Report Type: 
  Country: None (occurrence: None)
  Receive Date: 20041014
  Receipt Date: 20040928
  Transmission Date: 20050328
  Serious: Yes (Hospitalization)
  Sender: FDA-Public Use
  Company Number: DSA_24465_2004

PATIENT
  Age: 61 Year

DRUGS (2)
  1. MONO-TILDIEM [Suspect]
     Indication: HYPERTENSION
     Dates: start: 20040316, end: 20040325
  2. FRAXIPARINE [Concomitant]

REACTIONS (5)
  - BLOOD IMMUNOGLOBULIN G INCREASED [None]
  - HUMAN HERPES VIRUS 6 SEROLOGY POSITIVE [None]
  - RASH MACULO-PAPULAR [None]
  - RASH PRURITIC [None]
  - TOXIC SKIN ERUPTION [None]
